FAERS Safety Report 5513500-8 (Version None)
Quarter: 2007Q4

REPORT INFORMATION
  Report Type: 
  Country: None (occurrence: None)
  Receive Date: 20071112
  Receipt Date: 20071102
  Transmission Date: 20080405
  Serious: Yes (Other)
  Sender: FDA-Public Use
  Company Number: CA-PFIZER INC-2007093234

PATIENT
  Sex: Male

DRUGS (1)
  1. LIPITOR [Suspect]
     Route: 048
     Dates: start: 20050101, end: 20071026

REACTIONS (4)
  - BLOOD GLUCOSE DECREASED [None]
  - EYE LASER SURGERY [None]
  - MUSCULAR WEAKNESS [None]
  - VISUAL DISTURBANCE [None]
